FAERS Safety Report 11167689 (Version 1)
Quarter: 2015Q2

REPORT INFORMATION
  Report Type: Report from Study
  Country: CA (occurrence: CA)
  Receive Date: 20150605
  Receipt Date: 20150605
  Transmission Date: 20150821
  Serious: Yes (Death, Hospitalization, Disabling, Other)
  Sender: FDA-Public Use
  Company Number: CA-SA-THYM-1003230

PATIENT
  Age: 50 Year
  Sex: Male
  Weight: 73 kg

DRUGS (6)
  1. THYMOGLOBULIN [Suspect]
     Active Substance: LAPINE T-LYMPHOCYTE IMMUNE GLOBULIN
     Indication: PROPHYLAXIS AGAINST GRAFT VERSUS HOST DISEASE
     Dosage: 0.5 MG/KG, ONCE
     Route: 042
     Dates: start: 20120103, end: 20120103
  2. THYMOGLOBULIN [Suspect]
     Active Substance: LAPINE T-LYMPHOCYTE IMMUNE GLOBULIN
     Indication: IMMUNOSUPPRESSANT DRUG THERAPY
     Dosage: 0.5 MG/KG, ONCE
     Route: 042
     Dates: start: 20120103, end: 20120103
  3. THYMOGLOBULIN [Suspect]
     Active Substance: LAPINE T-LYMPHOCYTE IMMUNE GLOBULIN
     Indication: IMMUNOSUPPRESSANT DRUG THERAPY
     Dosage: 2 MG/KG, ONCE
     Route: 042
     Dates: start: 20120104, end: 20120104
  4. THYMOGLOBULIN [Suspect]
     Active Substance: LAPINE T-LYMPHOCYTE IMMUNE GLOBULIN
     Indication: IMMUNOSUPPRESSANT DRUG THERAPY
     Dosage: 2 MG/KG, ONCE
     Route: 042
     Dates: start: 20120106, end: 20120106
  5. THYMOGLOBULIN [Suspect]
     Active Substance: LAPINE T-LYMPHOCYTE IMMUNE GLOBULIN
     Indication: PROPHYLAXIS AGAINST GRAFT VERSUS HOST DISEASE
     Dosage: 2 MG/KG, ONCE
     Route: 042
     Dates: start: 20120104, end: 20120104
  6. THYMOGLOBULIN [Suspect]
     Active Substance: LAPINE T-LYMPHOCYTE IMMUNE GLOBULIN
     Indication: PROPHYLAXIS AGAINST GRAFT VERSUS HOST DISEASE
     Dosage: 2 MG/KG, ONCE
     Route: 042
     Dates: start: 20120106, end: 20120106

REACTIONS (14)
  - Rash erythematous [Unknown]
  - Ascites [Unknown]
  - Abdominal distension [Unknown]
  - Generalised oedema [Unknown]
  - Lung infiltration [Unknown]
  - Lower respiratory tract infection viral [Fatal]
  - Enterococcal bacteraemia [Unknown]
  - Infection [Unknown]
  - Lower respiratory tract infection bacterial [Fatal]
  - Graft versus host disease in skin [Not Recovered/Not Resolved]
  - Hypoalbuminaemia [Unknown]
  - Myopathy [Unknown]
  - Venoocclusive disease [Fatal]
  - Respiratory distress [Unknown]

NARRATIVE: CASE EVENT DATE: 20120121
